FAERS Safety Report 7241127-9 (Version None)
Quarter: 2011Q1

REPORT INFORMATION
  Report Type: 
  Country: None (occurrence: None)
  Receive Date: 20110124
  Receipt Date: 20110120
  Transmission Date: 20110831
  Serious: Yes (Other)
  Sender: FDA-Public Use
  Company Number: CHPA2011US01336

PATIENT
  Sex: Female

DRUGS (1)
  1. THERAFLU WARMING RELIEF COLD + CHEST CONG [Suspect]
     Dosage: UNK, UNK
     Route: 048
     Dates: start: 20110118, end: 20110118

REACTIONS (1)
  - BLOOD PRESSURE INCREASED [None]
